FAERS Safety Report 12428964 (Version 1)
Quarter: 2016Q2

REPORT INFORMATION
  Report Type: Report from Study
  Country: CO (occurrence: CO)
  Receive Date: 20160602
  Receipt Date: 20160602
  Transmission Date: 20160815
  Serious: Yes (Hospitalization, Other)
  Sender: FDA-Public Use
  Company Number: CO-JNJFOC-20160528861

PATIENT
  Age: 75 Year
  Sex: Female
  Weight: 72 kg

DRUGS (1)
  1. SIMPONI [Suspect]
     Active Substance: GOLIMUMAB
     Indication: RHEUMATOID ARTHRITIS
     Route: 058
     Dates: start: 20160106

REACTIONS (6)
  - Oxygen consumption [Unknown]
  - Gastrointestinal haemorrhage [Unknown]
  - Atrial fibrillation [Recovered/Resolved]
  - Cardiac failure chronic [Unknown]
  - Hypertension [Unknown]
  - Escherichia urinary tract infection [Unknown]

NARRATIVE: CASE EVENT DATE: 20160510
